FAERS Safety Report 19207049 (Version 1)
Quarter: 2021Q2

REPORT INFORMATION
  Report Type: Spontaneous
  Country: US (occurrence: US)
  Receive Date: 20210430
  Receipt Date: 20210430
  Transmission Date: 20210717
  Serious: Yes (Other)
  Sender: FDA-Public Use
  Company Number: US-SUNOVION-2021SUN001598

PATIENT
  Sex: Female

DRUGS (2)
  1. LATUDA [Suspect]
     Active Substance: LURASIDONE HYDROCHLORIDE
     Indication: BIPOLAR DISORDER
     Dosage: UNK
     Route: 048
  2. LATUDA [Suspect]
     Active Substance: LURASIDONE HYDROCHLORIDE
     Dosage: 10 MG, QD (CUTTING 20 MG INTO HALF)
     Route: 048

REACTIONS (7)
  - Underdose [Unknown]
  - Suicidal ideation [Unknown]
  - Stress [Unknown]
  - Therapeutic response unexpected [Unknown]
  - Therapy cessation [Unknown]
  - Wrong technique in product usage process [Unknown]
  - Regressive behaviour [Unknown]
